FAERS Safety Report 8157064-1 (Version None)
Quarter: 2012Q1

REPORT INFORMATION
  Report Type: 
  Country: None (occurrence: None)
  Receive Date: 20120222
  Receipt Date: 20110929
  Transmission Date: 20120608
  Serious: Yes (Other)
  Sender: FDA-Public Use
  Company Number: US-ROCHE-1001155

PATIENT

DRUGS (4)
  1. CARBOPLATIN [Suspect]
     Indication: OVARIAN CANCER
  2. PACLITAXEL [Suspect]
     Indication: OVARIAN CANCER
     Dosage: FOR 6 CYCLES AS INDUCTION THERAPY
  3. TARCEVA [Suspect]
     Indication: OVARIAN CANCER
  4. AVASTIN [Suspect]
     Indication: OVARIAN CANCER
     Dosage: INDUCTION THERAPY (5 CYCLES) AND THEN CONTINUED

REACTIONS (8)
  - THROMBOSIS [None]
  - ANAEMIA [None]
  - HYPERTENSION [None]
  - LEUKOPENIA [None]
  - HAEMORRHAGE [None]
  - SKIN TOXICITY [None]
  - VAGINAL LACERATION [None]
  - DIARRHOEA [None]
